FAERS Safety Report 8195576-5 (Version None)
Quarter: 2012Q1

REPORT INFORMATION
  Report Type: 
  Country: None (occurrence: None)
  Receive Date: 20120308
  Receipt Date: 20120305
  Transmission Date: 20120608
  Serious: Yes (Death)
  Sender: FDA-Public Use
  Company Number: PHHY2012MY019469

PATIENT
  Age: 37 Year
  Sex: Female

DRUGS (7)
  1. PREDNISOLONE [Concomitant]
  2. FERROUS FUMARATE [Concomitant]
  3. TEGRETOL [Suspect]
     Indication: CONVULSION
     Dosage: 400 MG, DAILY
     Route: 048
  4. VALPROATE SODIUM [Concomitant]
  5. ACETAMINOPHEN [Concomitant]
  6. FOLIC ACID [Concomitant]
  7. VITAMIN B COMPLEX CAP [Concomitant]

REACTIONS (2)
  - DRUG RASH WITH EOSINOPHILIA AND SYSTEMIC SYMPTOMS [None]
  - HEPATIC FAILURE [None]
